FAERS Safety Report 13844062 (Version 4)
Quarter: 2018Q1

REPORT INFORMATION
  Report Type: Spontaneous
  Country: US (occurrence: US)
  Receive Date: 20170808
  Receipt Date: 20180201
  Transmission Date: 20180508
  Serious: Yes (Death, Other)
  Sender: FDA-Public Use
  Company Number: US-PFIZER INC-2017331294

PATIENT
  Age: 65 Year
  Sex: Male

DRUGS (2)
  1. INDOMETHACIN /00003801/ [Suspect]
     Active Substance: INDOMETHACIN
     Indication: PAIN
     Dosage: UNK
  2. INDOMETHACIN /00003801/ [Suspect]
     Active Substance: INDOMETHACIN
     Indication: SWELLING

REACTIONS (7)
  - Peripheral swelling [Unknown]
  - Cardio-respiratory arrest [Fatal]
  - Renal cell carcinoma [Fatal]
  - Myocardial infarction [Unknown]
  - Metastases to liver [Fatal]
  - Product use issue [Unknown]
  - Atrial septal defect [Fatal]
